FAERS Safety Report 4878284-5 (Version None)
Quarter: 2006Q1

REPORT INFORMATION
  Report Type: 
  Country: None (occurrence: None)
  Receive Date: 20060111
  Receipt Date: 20030605
  Transmission Date: 20060701
  Serious: Yes (Hospitalization, Other)
  Sender: FDA-Public Use
  Company Number: US-MERCK-0306USA00612

PATIENT
  Age: 59 Year
  Sex: Male
  Weight: 101 kg

DRUGS (2)
  1. VIOXX [Suspect]
     Indication: HEAD INJURY
     Route: 048
     Dates: start: 20001027, end: 20010404
  2. VIOXX [Suspect]
     Indication: HEADACHE
     Route: 048
     Dates: start: 20001027, end: 20010404

REACTIONS (6)
  - ANGINA PECTORIS [None]
  - CONVULSION [None]
  - CORONARY ARTERY DISEASE [None]
  - HYPERTENSION [None]
  - MYOCARDIAL INFARCTION [None]
  - NEPHROLITHIASIS [None]
